FAERS Safety Report 8299464-5 (Version None)
Quarter: 2012Q2

REPORT INFORMATION
  Report Type: 
  Country: None (occurrence: None)
  Receive Date: 20120417
  Receipt Date: 20120402
  Transmission Date: 20120825
  Serious: Yes (Other)
  Sender: FDA-Public Use
  Company Number: 2012-001435

PATIENT
  Age: 69 Year
  Sex: Male

DRUGS (3)
  1. ARAVA [Concomitant]
  2. ACTONELCOMBI (RISEDRONATE SODIUM CALCIUM CARBONATE VITAMIN D3) EFFERVE [Suspect]
     Indication: OSTEOPOROSIS
     Dosage: ORAL
     Route: 048
     Dates: start: 20080101
  3. SOLUPRED /0016201/ (PREDNISOLONE) [Concomitant]

REACTIONS (9)
  - TOOTH AVULSION [None]
  - OSTEOLYSIS [None]
  - ALVEOLAR OSTEITIS [None]
  - PURULENT DISCHARGE [None]
  - ORAL CAVITY FISTULA [None]
  - TOOTH INFECTION [None]
  - FISTULA DISCHARGE [None]
  - ORAL PAIN [None]
  - OSTEITIS [None]
